FAERS Safety Report 6896628-X (Version None)
Quarter: 2010Q3

REPORT INFORMATION
  Report Type: 
  Country: None (occurrence: None)
  Receive Date: 20100802
  Receipt Date: 20070109
  Transmission Date: 20110219
  Serious: No
  Sender: FDA-Public Use
  Company Number: US-PFIZER INC-2007003298

PATIENT
  Sex: Male
  Weight: 100.7 kg

DRUGS (2)
  1. LYRICA [Suspect]
     Indication: NEURALGIA
  2. LYRICA [Suspect]
     Indication: MYALGIA

REACTIONS (2)
  - DIZZINESS [None]
  - HEADACHE [None]
